FAERS Safety Report 4779281-0 (Version None)
Quarter: 2005Q3

REPORT INFORMATION
  Report Type: 
  Country: None (occurrence: None)
  Receive Date: 20050914
  Receipt Date: 20050801
  Transmission Date: 20060218
  Serious: Yes (Other)
  Sender: FDA-Public Use
  Company Number: 412895

PATIENT
  Sex: Female

DRUGS (3)
  1. BONIVA [Suspect]
     Dates: start: 20050716
  2. ROCALTROL [Concomitant]
  3. CALCIUM SUPPLEMENT (CALCIUM) [Concomitant]

REACTIONS (5)
  - ARTHRALGIA [None]
  - BACK PAIN [None]
  - ERUCTATION [None]
  - MYALGIA [None]
  - PYREXIA [None]
